FAERS Safety Report 9562935 (Version 1)
Quarter: 2013Q3

REPORT INFORMATION
  Report Type: Spontaneous
  Country: US (occurrence: US)
  Receive Date: 20130927
  Receipt Date: 20130927
  Transmission Date: 20140515
  Serious: Yes (Death, Disabling, Other)
  Sender: FDA-Public Use
  Company Number: US-PFIZER INC-2013274668

PATIENT
  Age: 59 Year
  Sex: Female
  Weight: 334 kg

DRUGS (15)
  1. ENBREL [Suspect]
     Indication: RHEUMATOID ARTHRITIS
     Dosage: UNK
     Route: 065
  2. XELJANZ [Suspect]
     Indication: RHEUMATOID ARTHRITIS
     Dosage: 5 MG, BID
     Route: 048
     Dates: start: 20130429
  3. HUMIRA [Suspect]
     Dosage: UNK
     Route: 065
  4. REMICADE [Suspect]
     Route: 065
  5. ORENCIA [Suspect]
     Dosage: UNK
     Route: 065
  6. RITUXAN [Suspect]
     Dosage: UNK
     Route: 065
  7. ACTEMRA [Suspect]
     Dosage: UNK
     Route: 065
  8. PLAQUENIL [Concomitant]
     Dosage: 200 MG, BID
  9. PREDNISONE [Concomitant]
     Dosage: 7.5 MG, QD
  10. FLEXERIL [Concomitant]
     Dosage: 10 MG, BID
  11. IMURAN [Concomitant]
     Dosage: 100 MG, AT BED TIME
  12. XARELTO [Concomitant]
     Dosage: UNK
  13. REVATIO [Concomitant]
     Dosage: UNK
  14. LASIX [Concomitant]
     Dosage: UNK
  15. COUMADINE [Concomitant]
     Dosage: UNK

REACTIONS (35)
  - Death [Fatal]
  - Vulval cancer [Unknown]
  - Pulmonary hypertension [Unknown]
  - Atrial fibrillation [Unknown]
  - Renal failure chronic [Unknown]
  - Walking disability [Unknown]
  - Tendon rupture [Unknown]
  - Shoulder deformity [Unknown]
  - Elbow deformity [Unknown]
  - Wrist deformity [Unknown]
  - Rheumatoid arthritis [Unknown]
  - Joint contracture [Unknown]
  - Arthralgia [Unknown]
  - Pain [Unknown]
  - Red blood cell sedimentation rate increased [Unknown]
  - C-reactive protein increased [Unknown]
  - Musculoskeletal pain [Unknown]
  - Joint swelling [Unknown]
  - Myalgia [Unknown]
  - Dry mouth [Unknown]
  - Dysphoria [Unknown]
  - Contusion [Unknown]
  - Osteoporosis [Unknown]
  - Drug ineffective [Unknown]
  - Pain in extremity [Unknown]
  - Weight bearing difficulty [Unknown]
  - Dry skin [Unknown]
  - Hypersensitivity [Unknown]
  - Arthropathy [Unknown]
  - Joint range of motion decreased [Unknown]
  - Joint laxity [Unknown]
  - Oedema peripheral [Unknown]
  - Osteoarthritis [Unknown]
  - Obesity [Unknown]
  - Rheumatoid nodule [Unknown]
